FAERS Safety Report 19910582 (Version 2)
Quarter: 2021Q4

REPORT INFORMATION
  Report Type: Spontaneous
  Country: DE (occurrence: DE)
  Receive Date: 20211004
  Receipt Date: 20211018
  Transmission Date: 20220303
  Serious: Yes (Congenital Anomaly, Other)
  Sender: FDA-Public Use
  Company Number: DE-PURACAP-DE-2021EPCLIT01028

PATIENT
  Sex: Female

DRUGS (1)
  1. NAPROXEN SODIUM [Suspect]
     Active Substance: NAPROXEN SODIUM
     Indication: Foetal exposure during pregnancy
     Route: 064

REACTIONS (12)
  - Coarctation of the aorta [Unknown]
  - Aorta hypoplasia [Unknown]
  - Ventricular septal defect [Unknown]
  - Atrial septal defect [Unknown]
  - Oesophageal atresia [Unknown]
  - Tracheo-oesophageal fistula [Unknown]
  - Choanal stenosis [Unknown]
  - Anomaly of external ear congenital [Unknown]
  - Single umbilical artery [Unknown]
  - Congenital choroid plexus cyst [Unknown]
  - Patent ductus arteriosus [Unknown]
  - Foetal exposure during pregnancy [Unknown]
